FAERS Safety Report 9475247 (Version 1)
Quarter: 2013Q3

REPORT INFORMATION
  Report Type: Spontaneous
  Country: US (occurrence: US)
  Receive Date: 20130825
  Receipt Date: 20130825
  Transmission Date: 20140515
  Serious: No
  Sender: FDA-Public Use
  Company Number: US-B.I. PHARMACEUTICALS,INC./RIDGEFIELD-2013-BI-25526BP

PATIENT
  Sex: Male
  Weight: 70 kg

DRUGS (2)
  1. SPIRIVA [Suspect]
     Indication: EMPHYSEMA
     Dosage: 18 MCG
     Route: 055
     Dates: start: 20130816
  2. ATROVENT HFA [Concomitant]
     Indication: EMPHYSEMA

REACTIONS (1)
  - Hypoaesthesia oral [Not Recovered/Not Resolved]
